FAERS Safety Report 19994413 (Version 1)
Quarter: 2021Q4

REPORT INFORMATION
  Report Type: Spontaneous
  Country: US (occurrence: US)
  Receive Date: 20211025
  Receipt Date: 20211025
  Transmission Date: 20220303
  Serious: Yes (Hospitalization)
  Sender: FDA-Public Use
  Company Number: US-NOVOPROD-857824

PATIENT
  Sex: Female

DRUGS (1)
  1. LEVEMIR [Suspect]
     Active Substance: INSULIN DETEMIR
     Indication: Product used for unknown indication
     Dosage: 42 IU, QD (24 IU AM;18 IU AT PM)
     Route: 058

REACTIONS (1)
  - Optic ischaemic neuropathy [Recovered/Resolved]

NARRATIVE: CASE EVENT DATE: 20210301
